FAERS Safety Report 7231590-1 (Version None)
Quarter: 2011Q1

REPORT INFORMATION
  Report Type: 
  Country: None (occurrence: None)
  Receive Date: 20110118
  Receipt Date: 20110113
  Transmission Date: 20110831
  Serious: Yes (Hospitalization)
  Sender: FDA-Public Use
  Company Number: US-ABBOTT-11P-163-0697431-00

PATIENT
  Sex: Male
  Weight: 91.708 kg

DRUGS (8)
  1. ATACAND [Concomitant]
     Indication: HYPERTENSION
  2. TRICOR [Concomitant]
     Indication: BLOOD CHOLESTEROL INCREASED
  3. VITAMIN B-12 [Concomitant]
     Indication: VITAMIN SUPPLEMENTATION
  4. NIASPAN [Suspect]
     Indication: BLOOD CHOLESTEROL INCREASED
     Dates: start: 20060101, end: 20100701
  5. METOPROLOL [Concomitant]
     Indication: HYPERTENSION
  6. FOLIC ACID [Concomitant]
     Indication: VITAMIN SUPPLEMENTATION
  7. VITAMIN D [Concomitant]
     Indication: VITAMIN SUPPLEMENTATION
  8. NITROGLYCERIN [Concomitant]
     Indication: CHEST PAIN

REACTIONS (4)
  - DEHYDRATION [None]
  - PAIN [None]
  - HERPES ZOSTER [None]
  - PNEUMONIA [None]
